FAERS Safety Report 7675757-7 (Version None)
Quarter: 2011Q3

REPORT INFORMATION
  Report Type: 
  Country: None (occurrence: None)
  Receive Date: 20110810
  Receipt Date: 20110801
  Transmission Date: 20111222
  Serious: Yes (Hospitalization)
  Sender: FDA-Public Use
  Company Number: US-ASTRAZENECA-2011SE43777

PATIENT
  Age: 48 Year
  Sex: Male
  Weight: 83.9 kg

DRUGS (3)
  1. DEPAKOTE [Concomitant]
  2. HEART MEDICATION [Interacting]
  3. SEROQUEL [Suspect]
     Indication: BIPOLAR I DISORDER
     Route: 048
     Dates: start: 20100101

REACTIONS (7)
  - DRUG INTERACTION [None]
  - AGITATION [None]
  - WRONG TECHNIQUE IN DRUG USAGE PROCESS [None]
  - CORONARY ARTERIAL STENT INSERTION [None]
  - MENTAL IMPAIRMENT [None]
  - MYOCARDIAL INFARCTION [None]
  - ADVERSE DRUG REACTION [None]
